FAERS Safety Report 5881166-3 (Version None)
Quarter: 2008Q3

REPORT INFORMATION
  Report Type: 
  Country: None (occurrence: None)
  Receive Date: 20080912
  Receipt Date: 20080619
  Transmission Date: 20090109
  Serious: No
  Sender: FDA-Public Use
  Company Number: US-ABBOTT-08P-163-0458770-00

PATIENT
  Sex: Female
  Weight: 52.21 kg

DRUGS (5)
  1. HUMIRA [Suspect]
     Indication: CROHN'S DISEASE
     Dosage: X1
     Route: 058
     Dates: start: 20070701, end: 20070701
  2. HUMIRA [Suspect]
     Dosage: X1, TWO WEEKS LATER
     Route: 058
  3. HUMIRA [Suspect]
     Route: 058
  4. ACETAMINOPHEN [Concomitant]
     Indication: PAIN
     Route: 048
  5. KAPSOVIT [Concomitant]
     Indication: VITAMIN SUPPLEMENTATION
     Route: 048

REACTIONS (8)
  - ARTHRITIS [None]
  - DYSPHAGIA [None]
  - DYSPHONIA [None]
  - ECZEMA [None]
  - INFLUENZA [None]
  - LIVER FUNCTION TEST ABNORMAL [None]
  - MYALGIA [None]
  - THROAT IRRITATION [None]
